FAERS Safety Report 20469253 (Version 1)
Quarter: 2022Q1

REPORT INFORMATION
  Report Type: Spontaneous
  Country: US (occurrence: None)
  Receive Date: 20220212
  Receipt Date: 20220212
  Transmission Date: 20220424
  Serious: Yes (Life-Threatening)
  Sender: FDA-Public Use
  Company Number: None

PATIENT
  Age: 64 Year
  Sex: Female
  Weight: 76.5 kg

DRUGS (1)
  1. VRAYLAR [Suspect]
     Active Substance: CARIPRAZINE
     Indication: Major depression
     Dates: start: 20200330, end: 20210430

REACTIONS (3)
  - Diabetes mellitus [None]
  - Major depression [None]
  - Disease recurrence [None]

NARRATIVE: CASE EVENT DATE: 20200801
